FAERS Safety Report 11649385 (Version 2)
Quarter: 2015Q4

REPORT INFORMATION
  Report Type: Report from Study
  Country: NZ (occurrence: NZ)
  Receive Date: 20151021
  Receipt Date: 20151106
  Transmission Date: 20160304
  Serious: Yes (Hospitalization, Other)
  Sender: FDA-Public Use
  Company Number: NZ-JNJFOC-20151012126

PATIENT
  Age: 38 Year
  Sex: Male
  Weight: 119 kg

DRUGS (1)
  1. STELARA [Suspect]
     Active Substance: USTEKINUMAB
     Indication: PSORIASIS
     Route: 058
     Dates: start: 20120905

REACTIONS (2)
  - Glycosylated haemoglobin increased [Unknown]
  - Diabetic coma [Recovered/Resolved]

NARRATIVE: CASE EVENT DATE: 201502
